FAERS Safety Report 6640030-2 (Version None)
Quarter: 2010Q1

REPORT INFORMATION
  Report Type: 
  Country: None (occurrence: None)
  Receive Date: 20100318
  Receipt Date: 20100312
  Transmission Date: 20100710
  Serious: Yes (Hospitalization, Other)
  Sender: FDA-Public Use
  Company Number: PHHY2010FR11106

PATIENT
  Sex: Male
  Weight: 70 kg

DRUGS (3)
  1. STALEVO 100 [Suspect]
     Dosage: MORE THAN 10 TABLETS
  2. RISPERDAL [Concomitant]
     Dosage: UNK
     Dates: end: 20090601
  3. VALIUM [Concomitant]

REACTIONS (6)
  - ABNORMAL BEHAVIOUR [None]
  - AGGRESSION [None]
  - INTENTIONAL DRUG MISUSE [None]
  - INTENTIONAL OVERDOSE [None]
  - LIBIDO INCREASED [None]
  - MOOD ALTERED [None]
